FAERS Safety Report 15663298 (Version 3)
Quarter: 2019Q1

REPORT INFORMATION
  Report Type: Report from Study
  Country: None (occurrence: US)
  Receive Date: 20181128
  Receipt Date: 20190311
  Transmission Date: 20190417
  Serious: Yes (Other)
  Sender: FDA-Public Use
  Company Number: US-ABBVIE-18S-163-2563432-00

PATIENT
  Sex: Male

DRUGS (4)
  1. ANDROGEL [Suspect]
     Active Substance: TESTOSTERONE
     Indication: BLOOD TESTOSTERONE DECREASED
  2. ANDROGEL [Suspect]
     Active Substance: TESTOSTERONE
     Indication: ERECTILE DYSFUNCTION
     Dosage: ANDROGEL STICK PACK 1.25G?ANDROGEL PUMP - 2 PUMPS DAILY TO SHOULDER AND UPPER ARM
     Route: 061
     Dates: start: 20171213
  3. ANDROGEL [Suspect]
     Active Substance: TESTOSTERONE
     Indication: BLOOD TESTOSTERONE DECREASED
  4. ANDROGEL [Suspect]
     Active Substance: TESTOSTERONE
     Indication: ERECTILE DYSFUNCTION
     Dosage: ANDROGEL PUMP - 2 PUMPS DAILY TO SHOULDER AND UPPER ARM
     Route: 061
     Dates: start: 2018, end: 2018

REACTIONS (1)
  - Hypertensive heart disease [Unknown]
